FAERS Safety Report 9500496 (Version 1)
Quarter: 2013Q1

REPORT INFORMATION
  Report Type: Spontaneous
  Country: US (occurrence: None)
  Receive Date: 20130107
  Receipt Date: 20130107
  Transmission Date: 20140127
  Serious: No
  Sender: FDA-Public Use
  Company Number: PHHY2012US100257

PATIENT
  Age: 56 Year
  Sex: Female

DRUGS (1)
  1. GILENYA (FINGOLIMOD) CAPSULE, 0.5MG [Suspect]
     Indication: RELAPSING-REMITTING MULTIPLE SCLEROSIS
     Route: 048
     Dates: start: 20110324

REACTIONS (6)
  - Hypersensitivity [None]
  - Influenza like illness [None]
  - Upper respiratory tract infection [None]
  - Rhinorrhoea [None]
  - Sneezing [None]
  - Pain [None]
